FAERS Safety Report 15158475 (Version 1)
Quarter: 2018Q3

REPORT INFORMATION
  Report Type: Spontaneous
  Country: US (occurrence: US)
  Receive Date: 20180718
  Receipt Date: 20180718
  Transmission Date: 20181010
  Serious: Yes (Hospitalization)
  Sender: FDA-Public Use
  Company Number: US-ALLERGAN-1768412US

PATIENT
  Sex: Female
  Weight: 63.9 kg

DRUGS (19)
  1. MORPHINE SULFATE UNK [Suspect]
     Active Substance: MORPHINE SULFATE
     Indication: PAIN
     Dosage: 2 MG, PRN
     Route: 048
     Dates: start: 20160418, end: 20160510
  2. FOLVITE [Concomitant]
     Active Substance: FOLIC ACID
  3. PROBIOTIC ACIDOPHILUS [Concomitant]
     Active Substance: LACTOBACILLUS ACIDOPHILUS
  4. NIVOLUMAB [Suspect]
     Active Substance: NIVOLUMAB
     Indication: SQUAMOUS CELL CARCINOMA
     Dosage: 240 MG, BI?WEEKLY
     Route: 042
     Dates: start: 20160411, end: 20160509
  5. TYLENOL [Concomitant]
     Active Substance: ACETAMINOPHEN
  6. LIDOCAINE AND PRILOCAINE [Concomitant]
     Active Substance: LIDOCAINE\PRILOCAINE
  7. SYNTHROID [Concomitant]
     Active Substance: LEVOTHYROXINE SODIUM
  8. DURAGESIC [Concomitant]
     Active Substance: FENTANYL
  9. ATIVAN [Concomitant]
     Active Substance: LORAZEPAM
  10. METHYLNALTREXONE [Concomitant]
     Active Substance: METHYLNALTREXONE
  11. REGLAN [Concomitant]
     Active Substance: METOCLOPRAMIDE HYDROCHLORIDE
  12. PROAMATINE [Concomitant]
     Active Substance: MIDODRINE HYDROCHLORIDE
  13. GLYCOLAX [Concomitant]
     Active Substance: POLYETHYLENE GLYCOL 3350
  14. CETRIMONIUM BROMIDE [Concomitant]
     Active Substance: CETRIMONIUM BROMIDE
  15. FLEXERIL [Concomitant]
     Active Substance: CYCLOBENZAPRINE HYDROCHLORIDE
  16. MARINOL (ALLOPURINOL) [Concomitant]
     Active Substance: ALLOPURINOL
  17. RANITIDINE. [Concomitant]
     Active Substance: RANITIDINE
  18. ROXICODONE [Concomitant]
     Active Substance: OXYCODONE HYDROCHLORIDE
  19. SENOKOT?S [Concomitant]
     Active Substance: DOCUSATE SODIUM\SENNOSIDES

REACTIONS (3)
  - Orthostatic hypotension [Recovered/Resolved]
  - Nausea [Unknown]
  - Syncope [Recovered/Resolved]
